FAERS Safety Report 8343591-0 (Version None)
Quarter: 2012Q2

REPORT INFORMATION
  Report Type: 
  Country: None (occurrence: None)
  Receive Date: 20120508
  Receipt Date: 20120430
  Transmission Date: 20120825
  Serious: Yes (Other)
  Sender: FDA-Public Use
  Company Number: US-BAYER-2012-029780

PATIENT
  Age: 27 Year
  Sex: Female

DRUGS (3)
  1. YASMIN [Suspect]
     Indication: ACNE
     Dosage: UNK
     Dates: start: 20040101
  2. YAZ [Suspect]
     Indication: ACNE
     Dosage: UNK
     Dates: start: 20040101
  3. ASPIRIN [Concomitant]
     Dosage: UNK
     Dates: start: 20100226

REACTIONS (3)
  - RETINAL ARTERY OCCLUSION [None]
  - PAIN [None]
  - INJURY [None]
